FAERS Safety Report 23642017 (Version 1)
Quarter: 2024Q1

REPORT INFORMATION
  Report Type: Report from Study
  Country: US (occurrence: US)
  Receive Date: 20240318
  Receipt Date: 20240318
  Transmission Date: 20240409
  Serious: Yes (Other)
  Sender: FDA-Public Use
  Company Number: US-ABBVIE-5679037

PATIENT
  Age: 49 Year
  Sex: Female

DRUGS (2)
  1. SKYRIZI [Suspect]
     Active Substance: RISANKIZUMAB-RZAA
     Indication: Psoriasis
     Dosage: FORM STRENGTH: 150 MILLIGRAM, FREQUENCY TEXT: WEEK 4 THEN EVERY 12 WEEKS THEREAFTER?FIRST ADMIN D...
     Route: 058
  2. SKYRIZI [Suspect]
     Active Substance: RISANKIZUMAB-RZAA
     Dosage: FORM STRENGTH: 150 MILLIGRAM, FREQUENCY TEXT: WEEK 0
     Route: 058
     Dates: start: 20231201, end: 20231201

REACTIONS (7)
  - Tendon injury [Unknown]
  - Fall [Unknown]
  - Nasopharyngitis [Recovering/Resolving]
  - Sinus disorder [Recovering/Resolving]
  - Epistaxis [Recovering/Resolving]
  - Meniscus injury [Unknown]
  - Cartilage injury [Unknown]

NARRATIVE: CASE EVENT DATE: 20240304
